FAERS Safety Report 8102255-9 (Version None)
Quarter: 2012Q1

REPORT INFORMATION
  Report Type: 
  Country: None (occurrence: None)
  Receive Date: 20120131
  Receipt Date: 20120131
  Transmission Date: 20120608
  Serious: Yes (Death)
  Sender: FDA-Public Use
  Company Number: None

PATIENT
  Age: 74 Year
  Sex: Female

DRUGS (23)
  1. LORAZEPAM [Concomitant]
  2. CYANOCOBALAMIN [Concomitant]
  3. ASCORBIC ACID [Concomitant]
  4. REVLIMID [Suspect]
     Indication: MULTIPLE MYELOMA
     Dosage: 10 MG DAILY X 21/28 DAYS BY MOUTH
     Route: 048
     Dates: start: 20110101, end: 20110801
  5. REVLIMID [Suspect]
     Indication: MULTIPLE MYELOMA
     Dosage: 10 MG DAILY X 21/28 DAYS BY MOUTH
     Route: 048
     Dates: start: 20090101, end: 20091201
  6. LISINOPRIL [Concomitant]
  7. ATROPINE [Concomitant]
  8. BISACODYL [Concomitant]
  9. CHLORHEXIDINE GLUCONATE [Concomitant]
  10. PERCOCET [Concomitant]
  11. PROCHLORPERAZINE [Concomitant]
  12. DICLOFENAC EYE GTTS [Concomitant]
  13. VITAMIN D [Concomitant]
  14. CEPHALEXIN [Concomitant]
  15. MORPHINE [Concomitant]
  16. NOVOLIN 70/30 [Concomitant]
  17. FENTANYL CITRATE [Concomitant]
  18. SENNA [Concomitant]
  19. MUPIROCIN [Concomitant]
  20. METFORMIN HCL [Concomitant]
  21. HYDROCHLOROTHIAZIDE [Concomitant]
  22. SODIUM PHOSPHATES [Concomitant]
  23. DOCUSATE SODIUM [Concomitant]

REACTIONS (4)
  - PANCYTOPENIA [None]
  - MULTIPLE MYELOMA [None]
  - NEOPLASM PROGRESSION [None]
  - NEUROPATHY PERIPHERAL [None]
